FAERS Safety Report 25909512 (Version 1)
Quarter: 2025Q4

REPORT INFORMATION
  Report Type: Spontaneous
  Country: US (occurrence: US)
  Receive Date: 20251011
  Receipt Date: 20251011
  Transmission Date: 20260118
  Serious: No
  Sender: SANOFI AVENTIS
  Company Number: US-SANOFI-02681113

PATIENT
  Age: 40 Year
  Sex: Female

DRUGS (4)
  1. DUPIXENT [Suspect]
     Active Substance: DUPILUMAB
     Indication: Asthma
     Dosage: 300 MG, QOW
     Dates: start: 2023
  2. DUPIXENT [Suspect]
     Active Substance: DUPILUMAB
     Dosage: UNK UNK, 1X
     Dates: start: 2025, end: 2025
  3. DUPIXENT [Suspect]
     Active Substance: DUPILUMAB
     Dosage: UNK UNK, 1X
     Dates: start: 2025, end: 2025
  4. ADVAIR HFA [Concomitant]
     Active Substance: FLUTICASONE PROPIONATE\SALMETEROL XINAFOATE
     Indication: Asthma

REACTIONS (8)
  - Injection site rash [Unknown]
  - C-reactive protein increased [Unknown]
  - White blood cell count increased [Unknown]
  - Neutrophilia [Unknown]
  - Conjunctivitis [Unknown]
  - Rash [Unknown]
  - Arthralgia [Unknown]
  - Off label use [Unknown]

NARRATIVE: CASE EVENT DATE: 20250101
